FAERS Safety Report 13790024 (Version 1)
Quarter: 2017Q3

REPORT INFORMATION
  Report Type: Spontaneous
  Country: US (occurrence: US)
  Receive Date: 20170725
  Receipt Date: 20170725
  Transmission Date: 20171127
  Serious: No
  Sender: FDA-Public Use
  Company Number: US-PFIZER INC-2017320106

PATIENT
  Sex: Female

DRUGS (5)
  1. GABAPENTIN. [Suspect]
     Active Substance: GABAPENTIN
     Dosage: 600 MG, UNK
  2. EFFEXOR XR [Suspect]
     Active Substance: VENLAFAXINE HYDROCHLORIDE
     Dosage: 150 MG, UNK
  3. METHOTREXATE SODIUM. [Suspect]
     Active Substance: METHOTREXATE SODIUM
     Dosage: 15 MG, WEEKLY
  4. CELEBREX [Suspect]
     Active Substance: CELECOXIB
     Dosage: 200 MG, UNK
  5. METOPROLOL TARTRATE. [Suspect]
     Active Substance: METOPROLOL TARTRATE
     Dosage: 10 MG, UNK

REACTIONS (13)
  - Nausea [Unknown]
  - Insomnia [Unknown]
  - Swelling [Unknown]
  - Lymphocyte count increased [Unknown]
  - Tenderness [Unknown]
  - Wheezing [Unknown]
  - Fatigue [Unknown]
  - White blood cell count increased [Unknown]
  - Mean platelet volume decreased [Unknown]
  - Arthralgia [Unknown]
  - Asthenia [Unknown]
  - Hypoaesthesia [Unknown]
  - C-reactive protein increased [Unknown]
